FAERS Safety Report 5353458-8 (Version None)
Quarter: 2007Q2

REPORT INFORMATION
  Report Type: 
  Country: None (occurrence: None)
  Receive Date: 20070612
  Receipt Date: 20070604
  Transmission Date: 20071010
  Serious: Yes (Other)
  Sender: FDA-Public Use
  Company Number: PHEH2007US08249

PATIENT
  Age: 53 Year
  Sex: Female

DRUGS (6)
  1. ZELNORM [Suspect]
     Indication: CONSTIPATION
     Route: 065
     Dates: start: 20051026
  2. CELEXA [Concomitant]
  3. BUSPAR [Concomitant]
  4. ZANTAC [Concomitant]
  5. ATENOLOL [Concomitant]
  6. PRILOSEC [Concomitant]

REACTIONS (4)
  - ANGIOPLASTY [None]
  - CHEST PAIN [None]
  - DYSPNOEA [None]
  - HYPERHIDROSIS [None]
